FAERS Safety Report 4743808-5 (Version None)
Quarter: 2005Q3

REPORT INFORMATION
  Report Type: 
  Country: None (occurrence: None)
  Receive Date: 20050809
  Receipt Date: 20050727
  Transmission Date: 20060218
  Serious: Yes (Life-Threatening, Hospitalization, Disabling, Other)
  Sender: FDA-Public Use
  Company Number: 2005048153

PATIENT
  Age: 11 Year
  Sex: Male
  Weight: 26 kg

DRUGS (3)
  1. GENOTONORM (SOMATROPIN) [Suspect]
     Indication: HYPOPITUITARISM
     Dosage: 0.85 MG (12 MG, INTERVAL: EVERY DAY), SUBCUTANEOUS
     Route: 058
     Dates: start: 20040722, end: 20050101
  2. CAPTOPRIL [Suspect]
     Indication: ILL-DEFINED DISORDER
     Dosage: 25 MG, ORAL
     Route: 048
     Dates: start: 20030213
  3. LEVOTHYROXINE SODIUM [Suspect]
     Indication: ILL-DEFINED DISORDER
     Dosage: 25 MCG, ORAL
     Route: 048
     Dates: start: 20020615

REACTIONS (13)
  - ACIDOSIS [None]
  - ANAEMIA [None]
  - CARDIAC FAILURE CHRONIC [None]
  - COUGH [None]
  - CYTOLYTIC HEPATITIS [None]
  - DYSPNOEA [None]
  - HEPATOMEGALY [None]
  - INFLAMMATION [None]
  - NEUTROPHILIA [None]
  - RENAL FAILURE ACUTE [None]
  - RESPIRATORY DISTRESS [None]
  - TACHYPNOEA [None]
  - VOMITING [None]
